FAERS Safety Report 19542716 (Version 1)
Quarter: 2021Q3

REPORT INFORMATION
  Report Type: Report from Study
  Country: ZA (occurrence: ZA)
  Receive Date: 20210713
  Receipt Date: 20210713
  Transmission Date: 20211014
  Serious: Yes (Hospitalization)
  Sender: FDA-Public Use
  Company Number: ZA-ASTRAZENECA-2021A613661

PATIENT
  Sex: Male

DRUGS (3)
  1. AMLOC [Concomitant]
     Dosage: 5.0MG UNKNOWN
  2. SYMBICORD [Suspect]
     Active Substance: BUDESONIDE\FORMOTEROL
     Dosage: 60 DOSE 320 MCG, UNKNOWN320.0UG/INHAL UNKNOWN
     Route: 055
  3. CARZIN XL [Concomitant]
     Active Substance: DOXAZOSIN MESYLATE
     Dosage: 4.0MG UNKNOWN

REACTIONS (1)
  - Illness [Not Recovered/Not Resolved]
